FAERS Safety Report 8220559-6 (Version None)
Quarter: 2012Q1

REPORT INFORMATION
  Report Type: 
  Country: None (occurrence: None)
  Receive Date: 20120320
  Receipt Date: 20120312
  Transmission Date: 20120608
  Serious: No
  Sender: FDA-Public Use
  Company Number: US-COVIDIEN/TYCO HEALTHCARE/MALLINCKRODT-T201201048

PATIENT
  Sex: Female
  Weight: 68.027 kg

DRUGS (3)
  1. OXYCODONE HCL [Concomitant]
     Indication: BREAKTHROUGH PAIN
     Dosage: 30 MG, UNK
     Route: 048
  2. OPANA [Concomitant]
     Indication: ARTHRALGIA
     Dosage: 40 MG, BID
     Dates: end: 20120301
  3. EXALGO [Suspect]
     Indication: ARTHRALGIA
     Dosage: 16 MG, 3 TABLETS EVERY DAY
     Route: 048

REACTIONS (3)
  - NAUSEA [None]
  - INAPPROPRIATE SCHEDULE OF DRUG ADMINISTRATION [None]
  - DYSGEUSIA [None]
